FAERS Safety Report 11154627 (Version 1)
Quarter: 2015Q2

REPORT INFORMATION
  Report Type: Spontaneous
  Country: US (occurrence: US)
  Receive Date: 20150602
  Receipt Date: 20150602
  Transmission Date: 20150821
  Serious: No
  Sender: FDA-Public Use
  Company Number: US-NOVEN PHARMACEUTICALS, INC.-US2015000035

PATIENT
  Age: 4 Year
  Sex: Male
  Weight: 20 kg

DRUGS (1)
  1. DAYTRANA [Suspect]
     Active Substance: METHYLPHENIDATE
     Indication: ATTENTION DEFICIT/HYPERACTIVITY DISORDER
     Dosage: 10 MG, UNK
     Route: 062
     Dates: start: 20150303

REACTIONS (7)
  - Drug ineffective [Unknown]
  - Insomnia [Unknown]
  - Anger [Unknown]
  - Drug prescribing error [Unknown]
  - Agitation [Unknown]
  - Mood swings [Unknown]
  - Aggression [Unknown]

NARRATIVE: CASE EVENT DATE: 201503
